FAERS Safety Report 17830423 (Version 1)
Quarter: 2020Q2

REPORT INFORMATION
  Report Type: Spontaneous
  Country: US (occurrence: US)
  Receive Date: 20200527
  Receipt Date: 20200527
  Transmission Date: 20200714
  Serious: Yes (Other)
  Sender: FDA-Public Use
  Company Number: US-BAYER-2020-090925

PATIENT
  Age: 75 Year
  Sex: Female

DRUGS (2)
  1. CIPROFLOXACIN BETAIN [Suspect]
     Active Substance: CIPROFLOXACIN
     Dosage: UNK
     Dates: start: 20200316
  2. COUMADIN [Interacting]
     Active Substance: WARFARIN SODIUM

REACTIONS (2)
  - Labelled drug-drug interaction medication error [None]
  - Adverse event [None]
